FAERS Safety Report 5632363-3 (Version None)
Quarter: 2008Q1

REPORT INFORMATION
  Report Type: 
  Country: None (occurrence: None)
  Receive Date: 20080131
  Receipt Date: 20071004
  Transmission Date: 20080703
  Serious: No
  Sender: FDA-Public Use
  Company Number: 163-21880-07100313(0)

PATIENT
  Age: 65 Year
  Sex: Male

DRUGS (2)
  1. REVLIMID [Suspect]
     Indication: MULTIPLE MYELOMA
     Dosage: 10 MG, DAILY FOR 2 WEEKS THEN 2 WEEKS OFF, ORAL : 20 MG, 2 IN 1 D, ORAL
     Route: 048
     Dates: start: 20060322, end: 20060701
  2. REVLIMID [Suspect]
     Indication: MULTIPLE MYELOMA
     Dosage: 10 MG, DAILY FOR 2 WEEKS THEN 2 WEEKS OFF, ORAL : 20 MG, 2 IN 1 D, ORAL
     Route: 048
     Dates: start: 20061109

REACTIONS (5)
  - BLOOD PRESSURE DECREASED [None]
  - COAGULOPATHY [None]
  - DIARRHOEA [None]
  - GASTROINTESTINAL DISORDER [None]
  - PLATELET COUNT DECREASED [None]
